FAERS Safety Report 5530934-6 (Version None)
Quarter: 2007Q4

REPORT INFORMATION
  Report Type: 
  Country: None (occurrence: None)
  Receive Date: 20071130
  Receipt Date: 20071120
  Transmission Date: 20080405
  Serious: Yes (Hospitalization)
  Sender: FDA-Public Use
  Company Number: FI-BAYER-200717145GPV

PATIENT
  Age: 31 Year
  Sex: Female
  Weight: 47 kg

DRUGS (1)
  1. MIRENA [Suspect]
     Indication: CONTRACEPTION
     Dosage: TOTAL DAILY DOSE: 20 ?G
     Route: 015
     Dates: start: 20030101, end: 20071101

REACTIONS (6)
  - AMENORRHOEA [None]
  - APHASIA [None]
  - BALANCE DISORDER [None]
  - BLINDNESS UNILATERAL [None]
  - CEREBRAL INFARCTION [None]
  - MIGRAINE [None]
